FAERS Safety Report 19654379 (Version 1)
Quarter: 2021Q3

REPORT INFORMATION
  Report Type: Spontaneous
  Country: US (occurrence: US)
  Receive Date: 20210804
  Receipt Date: 20210804
  Transmission Date: 20211014
  Serious: Yes (Hospitalization)
  Sender: FDA-Public Use
  Company Number: US-NOVOPROD-834475

PATIENT
  Age: 63 Year
  Sex: Male

DRUGS (1)
  1. RYBELSUS [Suspect]
     Active Substance: SEMAGLUTIDE
     Indication: PRODUCT USED FOR UNKNOWN INDICATION
     Dosage: UNK
     Route: 048

REACTIONS (5)
  - Gastric disorder [Unknown]
  - Blood glucose increased [Recovered/Resolved]
  - Illness [Unknown]
  - Glycosylated haemoglobin increased [Unknown]
  - Pneumonia [Unknown]
